FAERS Safety Report 21872629 (Version 2)
Quarter: 2023Q1

REPORT INFORMATION
  Report Type: Report from Study
  Country: US (occurrence: US)
  Receive Date: 20230117
  Receipt Date: 20230130
  Transmission Date: 20230417
  Serious: No
  Sender: FDA-Public Use
  Company Number: US-ABBVIE-4273079

PATIENT
  Sex: Male

DRUGS (1)
  1. VENCLEXTA [Suspect]
     Active Substance: VENETOCLAX
     Indication: Plasma cell myeloma recurrent
     Dosage: TIME INTERVAL: 0.125 DAYS: DAYS 1-21 OF 21 DAY CYCLE?FORM STRENGTH: 100MG
     Route: 048

REACTIONS (2)
  - Nasopharyngitis [Unknown]
  - Product use in unapproved indication [Unknown]
